FAERS Safety Report 23033695 (Version 2)
Quarter: 2023Q4

REPORT INFORMATION
  Report Type: Spontaneous
  Country: US (occurrence: US)
  Receive Date: 20231005
  Receipt Date: 20231016
  Transmission Date: 20240110
  Serious: Yes (Hospitalization)
  Sender: FDA-Public Use
  Company Number: US-TEVA-2023-US-2930636

PATIENT
  Age: 60 Year
  Sex: Female

DRUGS (2)
  1. OXYCODONE [Interacting]
     Active Substance: OXYCODONE
     Indication: Product used for unknown indication
     Route: 065
  2. ACETAMINOPHEN [Interacting]
     Active Substance: ACETAMINOPHEN
     Indication: Product used for unknown indication
     Dosage: RECEIVED PILLS
     Route: 048

REACTIONS (5)
  - Toxicity to various agents [Unknown]
  - Mental status changes [Recovering/Resolving]
  - Loss of consciousness [Recovering/Resolving]
  - Overdose [Unknown]
  - Drug interaction [Unknown]
